FAERS Safety Report 21232759 (Version 2)
Quarter: 2022Q4

REPORT INFORMATION
  Report Type: Spontaneous
  Country: FI (occurrence: FI)
  Receive Date: 20220819
  Receipt Date: 20221013
  Transmission Date: 20230113
  Serious: Yes (Hospitalization, Other)
  Sender: FDA-Public Use
  Company Number: FI-ROCHE-3081009

PATIENT
  Age: 58 Year
  Sex: Male

DRUGS (4)
  1. CAPECITABINE [Suspect]
     Active Substance: CAPECITABINE
     Indication: Rectal cancer
     Dosage: UNK, CYCLE (RECEIVED 1 CYCLE)
     Route: 048
  2. OXALIPLATIN [Suspect]
     Active Substance: OXALIPLATIN
     Indication: Rectal cancer
     Dosage: UNK, CYCLE (RECEIVED 1 CYCLE; ALONG WITH CAPECITABINE AND OXALIPLATIN )
     Route: 065
  3. OXALIPLATIN [Suspect]
     Active Substance: OXALIPLATIN
  4. GIMERACIL\OTERACIL\TEGAFUR [Suspect]
     Active Substance: GIMERACIL\OTERACIL\TEGAFUR
     Indication: Rectal cancer
     Dosage: UNK, CYCLE (RECEIVED 1 CYCLE)
     Route: 065

REACTIONS (5)
  - Cardiac arrest [Recovered/Resolved]
  - Acute coronary syndrome [Recovered/Resolved]
  - Ventricular tachycardia [Recovered/Resolved]
  - Tachycardia [Recovered/Resolved]
  - Cardiotoxicity [Recovered/Resolved with Sequelae]
